FAERS Safety Report 8808580 (Version 3)
Quarter: 2012Q4

REPORT INFORMATION
  Report Type: 
  Country: JP (occurrence: JP)
  Receive Date: 20120926
  Receipt Date: 20121104
  Transmission Date: 20130627
  Serious: Yes (Hospitalization, Other)
  Sender: FDA-Public Use
  Company Number: JP-JNJFOC-20120805856

PATIENT
  Age: 32 Year
  Sex: Female
  Weight: 43 kg

DRUGS (9)
  1. REMICADE [Suspect]
     Indication: CROHN^S DISEASE
     Route: 042
     Dates: start: 20120709, end: 20120709
  2. REMICADE [Suspect]
     Indication: CROHN^S DISEASE
     Route: 042
     Dates: start: 20120604
  3. REMICADE [Suspect]
     Indication: CROHN^S DISEASE
     Route: 042
     Dates: start: 20060104
  4. REMICADE [Suspect]
     Indication: CROHN^S DISEASE
     Route: 042
     Dates: start: 20120111
  5. FERRUM [Concomitant]
     Indication: CROHN^S DISEASE
     Route: 048
     Dates: start: 20120215
  6. ELNEOPA NO 1 [Concomitant]
     Indication: CROHN^S DISEASE
     Dosage: route f administration given as DR
     Route: 041
     Dates: start: 20120518, end: 20120925
  7. PENTASA [Concomitant]
     Indication: CROHN^S DISEASE
     Dosage: total daily dose: 3000 mg
     Route: 048
  8. MIYA-BM [Concomitant]
     Indication: CROHN^S DISEASE
     Dosage: total daily dose: 3 g
     Route: 048
  9. ELENTAL [Concomitant]
     Indication: CROHN^S DISEASE
     Dosage: total daily dose: 160 g
     Route: 048

REACTIONS (6)
  - Anal fistula [Unknown]
  - Listeriosis [Recovered/Resolved]
  - Genital haemorrhage [Not Recovered/Not Resolved]
  - Vaginal fistula [Unknown]
  - Threatened labour [Recovered/Resolved]
  - Exposure during pregnancy [Recovered/Resolved]
